FAERS Safety Report 6901882-1 (Version None)
Quarter: 2010Q3

REPORT INFORMATION
  Report Type: 
  Country: None (occurrence: None)
  Receive Date: 20100803
  Receipt Date: 20080327
  Transmission Date: 20110219
  Serious: No
  Sender: FDA-Public Use
  Company Number: US-PFIZER INC-2008027444

PATIENT
  Sex: Female
  Weight: 60.454 kg

DRUGS (5)
  1. LYRICA [Suspect]
     Indication: FIBROMYALGIA
     Dates: start: 20080324
  2. TRICOR [Concomitant]
  3. PREVACID [Concomitant]
  4. LESCOL [Concomitant]
  5. ALTACE [Concomitant]

REACTIONS (2)
  - DIZZINESS POSTURAL [None]
  - EAR DISCOMFORT [None]
